FAERS Safety Report 5781998-6 (Version None)
Quarter: 2008Q2

REPORT INFORMATION
  Report Type: 
  Country: None (occurrence: None)
  Receive Date: 20080618
  Receipt Date: 20080602
  Transmission Date: 20081010
  Serious: No
  Sender: FDA-Public Use
  Company Number: JPI-P-003701

PATIENT
  Age: 34 Year
  Sex: Female

DRUGS (15)
  1. LUVOX [Suspect]
     Indication: DEPRESSION
     Dosage: (50 MG,1 D), ORAL, (100 MG,1 D), ORAL; (50 MG,1 D), ORAL; (150 MG,1 D), ORAL; (75 MG,1 D), ORAL
     Route: 048
     Dates: start: 20080105, end: 20080118
  2. LUVOX [Suspect]
     Indication: DEPRESSION
     Dosage: (50 MG,1 D), ORAL, (100 MG,1 D), ORAL; (50 MG,1 D), ORAL; (150 MG,1 D), ORAL; (75 MG,1 D), ORAL
     Route: 048
     Dates: start: 20080119, end: 20080126
  3. LUVOX [Suspect]
     Indication: DEPRESSION
     Dosage: (50 MG,1 D), ORAL, (100 MG,1 D), ORAL; (50 MG,1 D), ORAL; (150 MG,1 D), ORAL; (75 MG,1 D), ORAL
     Route: 048
     Dates: start: 20080127, end: 20080201
  4. LUVOX [Suspect]
     Indication: DEPRESSION
     Dosage: (50 MG,1 D), ORAL, (100 MG,1 D), ORAL; (50 MG,1 D), ORAL; (150 MG,1 D), ORAL; (75 MG,1 D), ORAL
     Route: 048
     Dates: start: 20080202, end: 20080208
  5. LUVOX [Suspect]
     Indication: DEPRESSION
     Dosage: (50 MG,1 D), ORAL, (100 MG,1 D), ORAL; (50 MG,1 D), ORAL; (150 MG,1 D), ORAL; (75 MG,1 D), ORAL
     Route: 048
     Dates: start: 20080209, end: 20080214
  6. LUVOX [Suspect]
     Indication: DEPRESSION
     Dosage: (50 MG,1 D), ORAL, (100 MG,1 D), ORAL; (50 MG,1 D), ORAL; (150 MG,1 D), ORAL; (75 MG,1 D), ORAL
     Route: 048
     Dates: start: 20080215, end: 20080218
  7. TEPRENONE (TEPRENONE) (CAPSULES) [Concomitant]
  8. METOCLOPRAMIDE (METOCLOPRAMIDE) (TABLETS) [Concomitant]
  9. CLOTIAZEPAM (CLOTIAZEPAM) [Concomitant]
  10. FLUNITRAZEPAM (FLUNITRAZEPAM) [Concomitant]
  11. MOSAPRIDE CITRATE (MOSAPRIDE CITRATE) [Concomitant]
  12. NON-PYRINE COLD PREPARATION [Concomitant]
  13. ETIZOLAM (ETIZOLAM) [Concomitant]
  14. TRIAZOLAM [Concomitant]
  15. FLURAZEPAM HCL [Concomitant]

REACTIONS (23)
  - ABNORMAL BEHAVIOUR [None]
  - ACTIVATION SYNDROME [None]
  - ANGER [None]
  - ANOREXIA [None]
  - DEPRESSION [None]
  - DRUG EFFECT INCREASED [None]
  - EUPHORIC MOOD [None]
  - FALL [None]
  - FATIGUE [None]
  - FRUSTRATION [None]
  - HOSTILITY [None]
  - HYPERKINESIA [None]
  - HYPERREFLEXIA [None]
  - IMPULSIVE BEHAVIOUR [None]
  - INSOMNIA [None]
  - IRRITABILITY [None]
  - MALAISE [None]
  - MANIA [None]
  - MOVEMENT DISORDER [None]
  - NASOPHARYNGITIS [None]
  - NAUSEA [None]
  - TENSION [None]
  - WEIGHT DECREASED [None]
